FAERS Safety Report 4311149-6 (Version None)
Quarter: 2004Q1

REPORT INFORMATION
  Report Type: 
  Country: None (occurrence: None)
  Receive Date: 20040302
  Receipt Date: 20040217
  Transmission Date: 20041129
  Serious: Yes (Hospitalization)
  Sender: FDA-Public Use
  Company Number: FR-JNJFOC-20040204308

PATIENT
  Sex: Female

DRUGS (1)
  1. HALDOL [Suspect]
     Dosage: 1 ML, INTRA-MUSCULAR

REACTIONS (2)
  - ACCIDENT AT WORK [None]
  - INJURY [None]
